FAERS Safety Report 19379391 (Version 2)
Quarter: 2021Q2

REPORT INFORMATION
  Report Type: Report from Study
  Country: US (occurrence: US)
  Receive Date: 20210607
  Receipt Date: 20210610
  Transmission Date: 20210717
  Serious: No
  Sender: FDA-Public Use
  Company Number: NVSC2021US125423

PATIENT
  Sex: Male

DRUGS (1)
  1. COSENTYX [Suspect]
     Active Substance: SECUKINUMAB
     Indication: PSORIASIS
     Dosage: 150 MG, QMO(BENEATH THE SKIN)
     Route: 058

REACTIONS (3)
  - Back pain [Unknown]
  - Intervertebral disc protrusion [Unknown]
  - Arthritis [Unknown]
